FAERS Safety Report 5078414-9 (Version None)
Quarter: 2006Q3

REPORT INFORMATION
  Report Type: 
  Country: None (occurrence: None)
  Receive Date: 20060808
  Receipt Date: 20060719
  Transmission Date: 20061208
  Serious: Yes (Hospitalization)
  Sender: FDA-Public Use
  Company Number: ES200607004025

PATIENT
  Age: 26 Year
  Sex: Female

DRUGS (4)
  1. OLANZAPINE [Suspect]
     Dosage: SEE IMAGE
  2. ALPRAZOLAM [Concomitant]
  3. DIPOTASSIUM CLORAZEPATE (CLORAZEPATE DIPOTASSIUM) [Concomitant]
  4. HALOPERIDOL [Concomitant]

REACTIONS (19)
  - AMNESIA [None]
  - APHASIA [None]
  - BLOOD SODIUM INCREASED [None]
  - COGNITIVE DISORDER [None]
  - DISTURBANCE IN ATTENTION [None]
  - ELECTROENCEPHALOGRAM ABNORMAL [None]
  - EPSTEIN-BARR VIRUS ANTIBODY POSITIVE [None]
  - HAEMOGLOBIN DECREASED [None]
  - LIPOMA [None]
  - NEUROLEPTIC MALIGNANT SYNDROME [None]
  - PLATELET COUNT INCREASED [None]
  - PRESCRIBED OVERDOSE [None]
  - PSYCHOTIC DISORDER [None]
  - RENAL FAILURE [None]
  - RESTLESSNESS [None]
  - SKIN DISORDER [None]
  - STUPOR [None]
  - UNRESPONSIVE TO STIMULI [None]
  - WHITE BLOOD CELL COUNT INCREASED [None]
